FAERS Safety Report 19821790 (Version 1)
Quarter: 2021Q3

REPORT INFORMATION
  Report Type: Spontaneous
  Country: US (occurrence: US)
  Receive Date: 20210913
  Receipt Date: 20210913
  Transmission Date: 20211014
  Serious: Yes (Hospitalization)
  Sender: FDA-Public Use
  Company Number: None

PATIENT
  Sex: Female

DRUGS (13)
  1. FENOFIBRATE. [Concomitant]
     Active Substance: FENOFIBRATE
  2. LISINOPRIL. [Concomitant]
     Active Substance: LISINOPRIL
  3. METFORMIN [Concomitant]
     Active Substance: METFORMIN HYDROCHLORIDE
  4. FUROSEMIDE. [Concomitant]
     Active Substance: FUROSEMIDE
  5. ASPIRIN. [Concomitant]
     Active Substance: ASPIRIN
  6. POT CL MICRO TAB [Concomitant]
  7. REPATHA [Suspect]
     Active Substance: EVOLOCUMAB
     Indication: TYPE IIA HYPERLIPIDAEMIA
     Dosage: OTHER FREQUENCY:Q2WKS;?
     Route: 058
     Dates: start: 20210714
  8. LOSARTAN. [Concomitant]
     Active Substance: LOSARTAN
  9. EZETIMIBE. [Concomitant]
     Active Substance: EZETIMIBE
  10. CEFUROXIME. [Concomitant]
     Active Substance: CEFUROXIME
  11. METOPROLOL. [Concomitant]
     Active Substance: METOPROLOL
  12. GLIMEPIRIDE. [Concomitant]
     Active Substance: GLIMEPIRIDE
  13. CLOPIDOGREL [Concomitant]
     Active Substance: CLOPIDOGREL BISULFATE

REACTIONS (4)
  - Fatigue [None]
  - Sepsis [None]
  - Blood count abnormal [None]
  - Fall [None]
